FAERS Safety Report 20557835 (Version 21)
Quarter: 2023Q2

REPORT INFORMATION
  Report Type: Report from Study
  Country: GB (occurrence: None)
  Receive Date: 20220307
  Receipt Date: 20230503
  Transmission Date: 20230722
  Serious: Yes (Hospitalization)
  Sender: FDA-Public Use
  Company Number: GB-ROCHE-2994683

PATIENT
  Age: 74 Year
  Sex: Male

DRUGS (63)
  1. OBINUTUZUMAB [Suspect]
     Active Substance: OBINUTUZUMAB
     Indication: Chronic lymphocytic leukaemia
     Dosage: DATE OF LAST ADMINISTRATION OF STUDY DRUG WAS 75 MG, DOSE INTENDED WAS100 MG
     Route: 042
     Dates: start: 20170209, end: 20170209
  2. OBINUTUZUMAB [Suspect]
     Active Substance: OBINUTUZUMAB
     Dosage: DATE OF LAST DOSE OF STUDY DRUG ON 28/JUN/2017
     Route: 042
     Dates: start: 20170628, end: 20170628
  3. ACALABRUTINIB [Suspect]
     Active Substance: ACALABRUTINIB
     Indication: Chronic lymphocytic leukaemia
     Route: 048
     Dates: start: 20210712, end: 20210712
  4. ACALABRUTINIB [Suspect]
     Active Substance: ACALABRUTINIB
     Route: 065
     Dates: start: 20210713, end: 20211226
  5. ACALABRUTINIB [Suspect]
     Active Substance: ACALABRUTINIB
     Route: 065
     Dates: start: 20211227, end: 20220602
  6. ACALABRUTINIB [Suspect]
     Active Substance: ACALABRUTINIB
     Route: 065
     Dates: start: 20220103, end: 20220202
  7. ACALABRUTINIB [Suspect]
     Active Substance: ACALABRUTINIB
     Route: 065
     Dates: start: 20220203, end: 20220330
  8. ACALABRUTINIB [Suspect]
     Active Substance: ACALABRUTINIB
     Route: 065
     Dates: start: 20220331, end: 20220502
  9. ACALABRUTINIB [Suspect]
     Active Substance: ACALABRUTINIB
     Route: 065
     Dates: start: 20220503, end: 20220705
  10. ACALABRUTINIB [Suspect]
     Active Substance: ACALABRUTINIB
     Route: 065
     Dates: start: 20220706
  11. CHLORAMBUCIL [Suspect]
     Active Substance: CHLORAMBUCIL
     Indication: Chronic lymphocytic leukaemia
     Dosage: DAYS 1 AND 15 OF CYCLES?TABLET TAKEN 22
     Route: 048
     Dates: start: 20170209
  12. CHLORAMBUCIL [Suspect]
     Active Substance: CHLORAMBUCIL
     Dosage: DAYS 1 AND 15 OF CYCLES
     Route: 048
     Dates: start: 20170713, end: 20170713
  13. IPRATROPIUM BROMIDE [Concomitant]
     Active Substance: IPRATROPIUM BROMIDE\IPRATROPIUM BROMIDE ANHYDROUS
     Indication: Chronic obstructive pulmonary disease
  14. ONDANSETRON [Concomitant]
     Active Substance: ONDANSETRON
     Dates: start: 2019
  15. AMLODIPINE [Concomitant]
     Active Substance: AMLODIPINE BESYLATE
     Indication: Hypertension
     Dates: start: 2010
  16. ACYCLOVIR [Concomitant]
     Active Substance: ACYCLOVIR
     Indication: Infection
  17. RAMIPRIL [Concomitant]
     Active Substance: RAMIPRIL
     Indication: Hypertension
  18. TIOTROPIUM BROMIDE [Concomitant]
     Active Substance: TIOTROPIUM BROMIDE
     Indication: Chronic obstructive pulmonary disease
  19. SERETIDE [Concomitant]
     Active Substance: FLUTICASONE PROPIONATE\SALMETEROL XINAFOATE
     Indication: Chronic obstructive pulmonary disease
  20. METHYLPREDNISOLONE [Concomitant]
     Active Substance: METHYLPREDNISOLONE
     Dates: start: 2017
  21. METHYLPREDNISOLONE [Concomitant]
     Active Substance: METHYLPREDNISOLONE
     Dates: start: 2017
  22. ACETAMINOPHEN [Concomitant]
     Active Substance: ACETAMINOPHEN
     Dates: start: 2017
  23. ALLOPURINOL [Concomitant]
     Active Substance: ALLOPURINOL
  24. CLOTRIMAZOLE [Concomitant]
     Active Substance: CLOTRIMAZOLE
     Indication: Infection
  25. AMOXICILLIN [Concomitant]
     Active Substance: AMOXICILLIN
     Indication: Chronic obstructive pulmonary disease
     Dates: start: 2020
  26. AMOXICILLIN [Concomitant]
     Active Substance: AMOXICILLIN
     Dates: start: 2022
  27. CIPROFLOXACIN [Concomitant]
     Active Substance: CIPROFLOXACIN
     Indication: Infection
     Dates: start: 2018
  28. HYDROCORTISONE [Concomitant]
     Active Substance: HYDROCORTISONE
     Indication: Chronic obstructive pulmonary disease
  29. CLOPIDOGREL [Concomitant]
     Active Substance: CLOPIDOGREL BISULFATE
     Route: 048
  30. ATORVASTATIN [Concomitant]
     Active Substance: ATORVASTATIN
  31. OMEPRAZOLE [Concomitant]
     Active Substance: OMEPRAZOLE
     Indication: Obstructive pancreatitis
  32. DOXYCYCLINE [Concomitant]
     Active Substance: DOXYCYCLINE
     Indication: Lower respiratory tract infection
  33. IPRATROPIUM BROMIDE [Concomitant]
     Active Substance: IPRATROPIUM BROMIDE\IPRATROPIUM BROMIDE ANHYDROUS
     Indication: Chronic obstructive pulmonary disease
  34. ANORO ELLIPTA [Concomitant]
     Active Substance: UMECLIDINIUM BROMIDE\VILANTEROL TRIFENATATE
     Indication: Chronic obstructive pulmonary disease
  35. AMOXICILLIN\CLAVULANATE POTASSIUM [Concomitant]
     Active Substance: AMOXICILLIN\CLAVULANATE POTASSIUM
     Dates: start: 2021
  36. AMOXICILLIN\CLAVULANATE POTASSIUM [Concomitant]
     Active Substance: AMOXICILLIN\CLAVULANATE POTASSIUM
     Dates: start: 2022
  37. PIPERACILLIN SODIUM\TAZOBACTAM SODIUM [Concomitant]
     Active Substance: PIPERACILLIN SODIUM\TAZOBACTAM SODIUM
     Indication: Pneumonia
     Dates: start: 2021
  38. CLARITHROMYCIN [Concomitant]
     Active Substance: CLARITHROMYCIN
     Dates: start: 2021
  39. ENOXAPARIN SODIUM [Concomitant]
     Active Substance: ENOXAPARIN SODIUM
     Indication: Prophylaxis
     Dates: start: 2021
  40. COTRIMOXAZOLE [Concomitant]
     Active Substance: SULFAMETHOXAZOLE\TRIMETHOPRIM
  41. ENOXAPARIN SODIUM [Concomitant]
     Active Substance: ENOXAPARIN SODIUM
  42. ACYCLOVIR [Concomitant]
     Active Substance: ACYCLOVIR
  43. AMOXICILLIN TRIHYDRATE [Concomitant]
     Active Substance: AMOXICILLIN
     Indication: Lower respiratory tract infection
  44. CLAVULANATE POTASSIUM [Concomitant]
     Active Substance: CLAVULANATE POTASSIUM
     Indication: Lower respiratory tract infection
  45. BISOPROLOL [Concomitant]
     Active Substance: BISOPROLOL
     Route: 048
     Dates: start: 20220702
  46. METOCLOPRAMIDE [Concomitant]
     Active Substance: METOCLOPRAMIDE
     Dates: start: 2017
  47. VORICONAZOLE [Concomitant]
     Active Substance: VORICONAZOLE
     Dates: start: 2022
  48. CHLORPHENIRAMINE [Concomitant]
     Active Substance: CHLORPHENIRAMINE
     Indication: Rash
     Dates: start: 2017
  49. LANSOPRAZOLE [Concomitant]
     Active Substance: LANSOPRAZOLE
     Dates: start: 2019
  50. CLARITHROMYCIN [Concomitant]
     Active Substance: CLARITHROMYCIN
  51. CLARITHROMYCIN [Concomitant]
     Active Substance: CLARITHROMYCIN
  52. NIZATIDINE [Concomitant]
     Active Substance: NIZATIDINE
     Indication: Gastrooesophageal reflux disease
     Dates: start: 2022
  53. MORPHINE SULFATE [Concomitant]
     Active Substance: MORPHINE SULFATE
  54. METRONIDAZOLE [Concomitant]
     Active Substance: METRONIDAZOLE
     Indication: Obstructive pancreatitis
     Dates: start: 2019
  55. CLOPIDOGREL [Concomitant]
     Active Substance: CLOPIDOGREL BISULFATE
  56. SULFAMETHOXAZOLE\TRIMETHOPRIM [Concomitant]
     Active Substance: SULFAMETHOXAZOLE\TRIMETHOPRIM
     Indication: Gastrooesophageal reflux prophylaxis
  57. COCODAMOL [Concomitant]
     Active Substance: ACETAMINOPHEN\CODEINE PHOSPHATE
     Indication: Pain prophylaxis
  58. FLUTICASONE PROPIONATE [Concomitant]
     Active Substance: FLUTICASONE PROPIONATE
     Indication: Chronic obstructive pulmonary disease
  59. TINZAPARIN [Concomitant]
     Active Substance: TINZAPARIN
  60. SANDO-K [Concomitant]
  61. AMOXICILLIN [Concomitant]
     Active Substance: AMOXICILLIN
     Indication: Chronic obstructive pulmonary disease
  62. FLUCONAZOLE [Concomitant]
     Active Substance: FLUCONAZOLE
     Indication: Obstructive pancreatitis
  63. ELTROMBOPAG [Concomitant]
     Active Substance: ELTROMBOPAG
     Indication: Immune thrombocytopenia

REACTIONS (8)
  - Dyspnoea [Recovered/Resolved]
  - Lower respiratory tract infection [Recovered/Resolved]
  - Infective exacerbation of chronic obstructive airways disease [Recovered/Resolved]
  - Pneumonia [Recovered/Resolved]
  - COVID-19 pneumonia [Recovered/Resolved]
  - Lower respiratory tract infection [Recovered/Resolved]
  - Acute myocardial infarction [Recovered/Resolved]
  - Chronic obstructive pulmonary disease [Recovered/Resolved]

NARRATIVE: CASE EVENT DATE: 20211226
